FAERS Safety Report 25814056 (Version 1)
Quarter: 2025Q3

REPORT INFORMATION
  Report Type: Spontaneous
  Country: EU (occurrence: EU)
  Receive Date: 20250917
  Receipt Date: 20250917
  Transmission Date: 20251020
  Serious: Yes (Hospitalization)
  Sender: PFIZER
  Company Number: None

PATIENT
  Age: 55 Year
  Sex: Male
  Weight: 74 kg

DRUGS (3)
  1. CLINDAMYCIN HYDROCHLORIDE [Suspect]
     Active Substance: CLINDAMYCIN HYDROCHLORIDE
     Indication: Prophylaxis
     Route: 048
     Dates: start: 20250627, end: 20250707
  2. YERVOY [Suspect]
     Active Substance: IPILIMUMAB
     Indication: Metastatic malignant melanoma
     Dosage: 1 INJECTION, EVERY 3 WEEKS
     Route: 042
     Dates: start: 20250505, end: 20250711
  3. OPDIVO [Suspect]
     Active Substance: NIVOLUMAB
     Indication: Metastatic malignant melanoma
     Dosage: 1 INJECTION, EVERY 3 WEEKS
     Route: 042
     Dates: start: 20250505, end: 20250711

REACTIONS (5)
  - Vitiligo [Not Recovered/Not Resolved]
  - Gastritis [Recovering/Resolving]
  - Meningitis aseptic [Recovering/Resolving]
  - Hepatic cytolysis [Recovering/Resolving]
  - Off label use [Unknown]

NARRATIVE: CASE EVENT DATE: 20250501
